FAERS Safety Report 5109262-9 (Version None)
Quarter: 2006Q3

REPORT INFORMATION
  Report Type: 
  Country: None (occurrence: None)
  Receive Date: 20060920
  Receipt Date: 20060911
  Transmission Date: 20061208
  Serious: Yes (Hospitalization)
  Sender: FDA-Public Use
  Company Number: DE-SANOFI-SYNTHELABO-A04200600917

PATIENT
  Age: 67 Year
  Sex: Female

DRUGS (3)
  1. ANTIHYPERTENSIVES [Concomitant]
     Indication: HYPERTENSION
     Dosage: UNK
     Route: 065
  2. INDOMETHACIN [Concomitant]
     Indication: RHEUMATOID ARTHRITIS
     Dosage: 25 MG
     Route: 048
  3. CHLOROQUINE PHOSPHATE [Suspect]
     Indication: RHEUMATOID ARTHRITIS
     Dosage: 250 MG
     Route: 048

REACTIONS (11)
  - ARTERIOSCLEROSIS CORONARY ARTERY [None]
  - BLOOD CREATINE PHOSPHOKINASE INCREASED [None]
  - BLOOD CREATINE PHOSPHOKINASE MB INCREASED [None]
  - BUNDLE BRANCH BLOCK RIGHT [None]
  - CARDIOMYOPATHY [None]
  - CONDUCTION DISORDER [None]
  - HISTOLOGY ABNORMAL [None]
  - PULMONARY HYPERTENSION [None]
  - SINUS ARREST [None]
  - TROPONIN T INCREASED [None]
  - VENTRICULAR HYPERTROPHY [None]
